FAERS Safety Report 6760512-2 (Version None)
Quarter: 2010Q2

REPORT INFORMATION
  Report Type: 
  Country: None (occurrence: None)
  Receive Date: 20100607
  Receipt Date: 20100607
  Transmission Date: 20101027
  Serious: Yes (Death)
  Sender: FDA-Public Use
  Company Number: None

PATIENT
  Age: 79 Year
  Sex: Female
  Weight: 61.4 kg

DRUGS (14)
  1. ULORIC [Suspect]
     Indication: GOUT
     Dosage: 40 MG 1 TIME DAILY 047
     Dates: start: 20091001, end: 20100401
  2. LASIX [Concomitant]
  3. METOPROLOL TARTRATE [Concomitant]
  4. ATACAND [Concomitant]
  5. SIMVASTATIN [Concomitant]
  6. COLANZEPAM [Concomitant]
  7. LEXAPRO [Concomitant]
  8. COUMADIN [Concomitant]
  9. ULORIC [Concomitant]
  10. NEXIUM [Concomitant]
  11. PLAVIX [Concomitant]
  12. DICHOFENAC [Concomitant]
  13. TYLENOL (CAPLET) [Concomitant]
  14. FLAGAL [Concomitant]

REACTIONS (6)
  - CARDIAC FAILURE [None]
  - CEREBROVASCULAR ACCIDENT [None]
  - LOSS OF CONSCIOUSNESS [None]
  - RENAL FAILURE [None]
  - RESPIRATORY FAILURE [None]
  - VOMITING [None]
